FAERS Safety Report 14272354 (Version 1)
Quarter: 2017Q4

REPORT INFORMATION
  Report Type: Spontaneous
  Country: JP (occurrence: JP)
  Receive Date: 20171211
  Receipt Date: 20171211
  Transmission Date: 20180321
  Serious: Yes (Hospitalization, Other)
  Sender: FDA-Public Use
  Company Number: JP-OTSUKA-2016_025677

PATIENT
  Sex: Male

DRUGS (22)
  1. ABILIFY [Suspect]
     Active Substance: ARIPIPRAZOLE
     Dosage: 24 MG, UNK
     Route: 048
  2. REFLEX [Concomitant]
     Active Substance: MIRTAZAPINE
     Indication: SCHIZOPHRENIA
     Dosage: UNK
     Route: 065
  3. ABILIFY [Suspect]
     Active Substance: ARIPIPRAZOLE
     Dosage: 12 MG, UNK
     Route: 048
  4. RISPERDAL [Concomitant]
     Active Substance: RISPERIDONE
     Dosage: 4 MG, UNK
     Route: 065
  5. RISPERIDONE. [Concomitant]
     Active Substance: RISPERIDONE
     Indication: SCHIZOPHRENIA
     Dosage: 4 MG, UNK
     Route: 065
  6. RISPERIDONE. [Concomitant]
     Active Substance: RISPERIDONE
     Indication: SCHIZOPHRENIA
     Dosage: 2 MG, UNK
     Route: 065
  7. LORAZEPAM. [Concomitant]
     Active Substance: LORAZEPAM
     Dosage: UNK
     Route: 065
  8. ABILIFY [Suspect]
     Active Substance: ARIPIPRAZOLE
     Indication: SCHIZOPHRENIA
     Dosage: 18 MG, UNK
     Route: 048
  9. ABILIFY [Suspect]
     Active Substance: ARIPIPRAZOLE
     Dosage: 60 MG, UNK
     Route: 048
  10. ABILIFY [Suspect]
     Active Substance: ARIPIPRAZOLE
     Dosage: 12 MG, UNK
     Route: 048
  11. LORAZEPAM. [Concomitant]
     Active Substance: LORAZEPAM
     Indication: SCHIZOPHRENIA
     Dosage: UNK
     Route: 065
  12. QUETIAPINE. [Concomitant]
     Active Substance: QUETIAPINE
     Indication: SCHIZOPHRENIA
     Dosage: UNK
     Route: 065
  13. MIRTAZAPINE. [Concomitant]
     Active Substance: MIRTAZAPINE
     Indication: SCHIZOPHRENIA
     Dosage: UNK
     Route: 065
  14. LORAZEPAM. [Concomitant]
     Active Substance: LORAZEPAM
     Indication: SCHIZOPHRENIA
     Dosage: UNK
     Route: 065
  15. RISPERIDONE. [Concomitant]
     Active Substance: RISPERIDONE
     Dosage: 2 MG, UNK
     Route: 065
  16. SYCREST [Suspect]
     Active Substance: ASENAPINE MALEATE
     Indication: SCHIZOPHRENIA
     Dosage: UNK
     Route: 065
  17. WYPAX [Concomitant]
     Active Substance: LORAZEPAM
     Indication: SCHIZOPHRENIA
     Dosage: UNK
     Route: 065
  18. RISPERDAL [Concomitant]
     Active Substance: RISPERIDONE
     Indication: SCHIZOPHRENIA
     Dosage: 2 MG, UNK
     Route: 065
  19. SEROQUEL [Concomitant]
     Active Substance: QUETIAPINE FUMARATE
     Indication: SCHIZOPHRENIA
     Dosage: UNK
     Route: 065
  20. DEPAKENE [Concomitant]
     Active Substance: VALPROIC ACID
     Indication: SCHIZOPHRENIA
     Dosage: UNK
     Route: 065
  21. ABILIFY [Suspect]
     Active Substance: ARIPIPRAZOLE
     Dosage: 24 MG, UNK
     Route: 048
  22. RISPERIDONE. [Concomitant]
     Active Substance: RISPERIDONE
     Dosage: 4 MG, UNK
     Route: 065

REACTIONS (6)
  - Akathisia [Unknown]
  - Overdose [Unknown]
  - Aggression [Not Recovered/Not Resolved]
  - Depressed level of consciousness [Not Recovered/Not Resolved]
  - Dyspnoea [Not Recovered/Not Resolved]
  - Muscle rigidity [Recovering/Resolving]
